FAERS Safety Report 9627586 (Version 1)
Quarter: 2013Q4

REPORT INFORMATION
  Report Type: Not Available
  Country: US (occurrence: US)
  Receive Date: 20131016
  Receipt Date: 20131016
  Transmission Date: 20140711
  Serious: Yes (Hospitalization, Other)
  Sender: FDA-Public Use
  Company Number: US-LUNDBECK-DKLU1090090

PATIENT
  Age: 5 Year
  Sex: Male

DRUGS (7)
  1. SABRIL (TABLET) [Suspect]
     Indication: INFANTILE SPASMS
     Route: 048
     Dates: start: 20091021
  2. SABRIL (TABLET) [Suspect]
     Route: 048
  3. SABRIL (TABLET) [Suspect]
     Route: 048
  4. SABRIL (TABLET) [Suspect]
     Route: 048
     Dates: start: 201210
  5. SABRIL (TABLET) [Suspect]
     Route: 048
     Dates: start: 201210
  6. SABRIL (TABLET) [Suspect]
     Route: 048
     Dates: start: 201210
  7. SABRIL (TABLET) [Suspect]
     Route: 048
     Dates: start: 201303

REACTIONS (3)
  - Convulsion [Unknown]
  - Pneumonia viral [Unknown]
  - Irritability [Unknown]
